FAERS Safety Report 15101587 (Version 1)
Quarter: 2018Q3

REPORT INFORMATION
  Report Type: Spontaneous
  Country: US (occurrence: US)
  Receive Date: 20180703
  Receipt Date: 20180703
  Transmission Date: 20181010
  Serious: No
  Sender: FDA-Public Use
  Company Number: US-HORIZON-DUE-0265-2018

PATIENT
  Age: 64 Year
  Sex: Female

DRUGS (7)
  1. HUMIRA [Concomitant]
     Active Substance: ADALIMUMAB
  2. LISINOPRIL. [Concomitant]
     Active Substance: LISINOPRIL
  3. LYRICA [Concomitant]
     Active Substance: PREGABALIN
  4. PREDNISONE. [Concomitant]
     Active Substance: PREDNISONE
  5. ATORVASTATIN [Concomitant]
     Active Substance: ATORVASTATIN
  6. AMLODIPINE [Concomitant]
     Active Substance: AMLODIPINE BESYLATE
  7. DUEXIS [Suspect]
     Active Substance: FAMOTIDINE\IBUPROFEN
     Indication: PRODUCT USED FOR UNKNOWN INDICATION
     Dosage: 1 TAB TID

REACTIONS (2)
  - Abdominal discomfort [Unknown]
  - Abdominal pain upper [Unknown]
